FAERS Safety Report 16133671 (Version 1)
Quarter: 2019Q1

REPORT INFORMATION
  Report Type: Spontaneous
  Country: US (occurrence: US)
  Receive Date: 20190329
  Receipt Date: 20190329
  Transmission Date: 20190418
  Serious: Yes (Hospitalization, Other)
  Sender: FDA-Public Use
  Company Number: US-HIKMA PHARMACEUTICALS USA INC.-US-H14001-19-01898

PATIENT
  Age: 62 Year
  Sex: Female

DRUGS (1)
  1. GABAPENTIN. [Suspect]
     Active Substance: GABAPENTIN
     Indication: MUSCLE SPASMS
     Route: 065

REACTIONS (4)
  - Mental status changes [Recovered/Resolved]
  - Altered state of consciousness [Recovered/Resolved]
  - Nervous system disorder [Recovered/Resolved]
  - Myoclonus [Recovered/Resolved]
